FAERS Safety Report 6217358-3 (Version None)
Quarter: 2009Q2

REPORT INFORMATION
  Report Type: 
  Country: None (occurrence: None)
  Receive Date: 20090608
  Receipt Date: 20080808
  Transmission Date: 20091009
  Serious: No
  Sender: FDA-Public Use
  Company Number: A0741990A

PATIENT
  Age: 71 Year
  Sex: Male

DRUGS (5)
  1. WELLBUTRIN XL [Suspect]
     Dosage: 300MG PER DAY
     Route: 048
     Dates: start: 20070101
  2. CADUET [Concomitant]
  3. TOPROL-XL [Concomitant]
  4. AVODART [Concomitant]
  5. DOXYCYCLINE [Concomitant]

REACTIONS (2)
  - EX-TOBACCO USER [None]
  - THERAPEUTIC RESPONSE UNEXPECTED [None]
